FAERS Safety Report 25870378 (Version 2)
Quarter: 2025Q4

REPORT INFORMATION
  Report Type: Other
  Country: US (occurrence: US)
  Receive Date: 20251001
  Receipt Date: 20251223
  Transmission Date: 20260118
  Serious: No
  Sender: TRAVERE THERAPEUTICS
  Company Number: US-TRAVERE-2025TVT01571

PATIENT
  Sex: Female

DRUGS (1)
  1. FILSPARI [Suspect]
     Active Substance: SPARSENTAN
     Indication: IgA nephropathy
     Dosage: LOT NUMBER: 1979026, EXPIRY DATE: 31-AUG-2027
     Route: 048
     Dates: start: 20241220

REACTIONS (4)
  - Vision blurred [Unknown]
  - Blood pressure increased [Unknown]
  - Back pain [Unknown]
  - Protein urine present [Unknown]
